FAERS Safety Report 10040971 (Version 1)
Quarter: 2014Q1

REPORT INFORMATION
  Report Type: Spontaneous
  Country: US (occurrence: US)
  Receive Date: 20140327
  Receipt Date: 20140327
  Transmission Date: 20141002
  Serious: No
  Sender: FDA-Public Use
  Company Number: US-PFIZER INC-2014085216

PATIENT
  Age: 62 Year
  Sex: Female
  Weight: 55.8 kg

DRUGS (1)
  1. GENOTROPIN MQ [Suspect]
     Indication: PITUITARY TUMOUR
     Dosage: 0.8 MG, 1X/DAY
     Dates: start: 2013, end: 2013

REACTIONS (2)
  - Pain [Recovered/Resolved]
  - Swelling [Recovered/Resolved]
